FAERS Safety Report 4301344-4 (Version None)
Quarter: 2004Q1

REPORT INFORMATION
  Report Type: 
  Country: None (occurrence: None)
  Receive Date: 20040223
  Receipt Date: 20030326
  Transmission Date: 20041129
  Serious: No
  Sender: FDA-Public Use
  Company Number: US-GLAXOSMITHKLINE-A0402135A

PATIENT
  Sex: Female

DRUGS (1)
  1. NAVELBINE [Suspect]
     Route: 042
     Dates: start: 20030301

REACTIONS (3)
  - NECK PAIN [None]
  - OESOPHAGITIS [None]
  - RECALL PHENOMENON [None]
